FAERS Safety Report 21323933 (Version 1)
Quarter: 2022Q3

REPORT INFORMATION
  Report Type: Spontaneous
  Country: IE (occurrence: IE)
  Receive Date: 20220912
  Receipt Date: 20220912
  Transmission Date: 20221027
  Serious: Yes (Hospitalization)
  Sender: FDA-Public Use
  Company Number: None

PATIENT
  Age: 60 Year
  Sex: Male

DRUGS (2)
  1. OXALIPLATIN [Suspect]
     Active Substance: OXALIPLATIN
     Indication: Product used for unknown indication
     Route: 042
     Dates: start: 20220413
  2. CAPECITABINE (G) [Concomitant]
     Indication: Product used for unknown indication
     Dates: start: 20220413

REACTIONS (7)
  - Hypersensitivity [Recovering/Resolving]
  - Feeling hot [Recovering/Resolving]
  - Cold sweat [Recovering/Resolving]
  - Asthenia [Recovering/Resolving]
  - Malaise [Recovering/Resolving]
  - Pallor [Recovering/Resolving]
  - Dysphonia [Recovering/Resolving]

NARRATIVE: CASE EVENT DATE: 20220413
